FAERS Safety Report 9416129 (Version 2)
Quarter: 2013Q3

REPORT INFORMATION
  Report Type: Spontaneous
  Country: US (occurrence: None)
  Receive Date: 20130717
  Receipt Date: 20130717
  Transmission Date: 20140515
  Serious: Yes (Hospitalization, Other)
  Sender: FDA-Public Use
  Company Number: ADR-2013-01164

PATIENT
  Age: 15 Year
  Sex: Female

DRUGS (1)
  1. BACLOFEN [Suspect]
     Indication: CEREBRAL PALSY
     Dosage: 100 MCG/DAY

REACTIONS (5)
  - Convulsion [None]
  - Implant site swelling [None]
  - Muscle rigidity [None]
  - Dyskinesia [None]
  - Staring [None]
